FAERS Safety Report 4916951-5 (Version None)
Quarter: 2006Q1

REPORT INFORMATION
  Report Type: 
  Country: None (occurrence: None)
  Receive Date: 20060221
  Receipt Date: 20060209
  Transmission Date: 20060701
  Serious: Yes (Hospitalization)
  Sender: FDA-Public Use
  Company Number: FR-JNJFOC-20060202572

PATIENT
  Age: 64 Year
  Sex: Male
  Weight: 55 kg

DRUGS (10)
  1. REMICADE [Suspect]
     Indication: RHEUMATOID ARTHRITIS
     Route: 042
  2. OMEPRAZOLE [Concomitant]
     Route: 048
  3. OROCAL VITAMIN D3 [Concomitant]
     Route: 048
  4. OROCAL VITAMIN D3 [Concomitant]
     Route: 048
  5. KARDEGIC [Concomitant]
     Indication: MYOCARDIAL INFARCTION
     Route: 048
     Dates: end: 20050930
  6. NOVATREX [Concomitant]
     Indication: RHEUMATOID ARTHRITIS
     Route: 048
     Dates: start: 20020501, end: 20050902
  7. MONOTILDIEM [Concomitant]
     Route: 065
  8. SPECIAFOLDINE [Concomitant]
     Route: 065
  9. MOBIC [Concomitant]
     Route: 065
  10. CLONAZEPAM [Concomitant]
     Route: 065

REACTIONS (3)
  - ABSCESS [None]
  - COXIELLA INFECTION [None]
  - INTERVERTEBRAL DISCITIS [None]
